FAERS Safety Report 17328910 (Version 1)
Quarter: 2020Q1

REPORT INFORMATION
  Report Type: Spontaneous
  Country: US (occurrence: US)
  Receive Date: 20200110
  Receipt Date: 20200110
  Transmission Date: 20200409
  Serious: No
  Sender: FDA-Public Use
  Company Number: None

PATIENT
  Age: 58 Year
  Sex: Female
  Weight: 60.33 kg

DRUGS (4)
  1. FORTEO [Suspect]
     Active Substance: TERIPARATIDE
     Indication: RHEUMATOID ARTHRITIS
  2. HUMIRA [Suspect]
     Active Substance: ADALIMUMAB
     Indication: SENILE OSTEOPOROSIS
  3. FORTEO [Suspect]
     Active Substance: TERIPARATIDE
     Indication: OSTEOARTHRITIS
     Route: 058
     Dates: start: 201806
  4. HUMIRA [Suspect]
     Active Substance: ADALIMUMAB
     Indication: SENILE OSTEOPOROSIS
     Route: 058
     Dates: start: 201806

REACTIONS (1)
  - Lymphoma [None]
